FAERS Safety Report 23621514 (Version 2)
Quarter: 2024Q1

REPORT INFORMATION
  Report Type: Report from Study
  Country: TR (occurrence: TR)
  Receive Date: 20240312
  Receipt Date: 20240315
  Transmission Date: 20240410
  Serious: Yes (Death, Hospitalization, Other)
  Sender: FDA-Public Use
  Company Number: TR-ABBVIE-5671882

PATIENT
  Age: 81 Year
  Sex: Female
  Weight: 116 kg

DRUGS (5)
  1. CARBIDOPA\LEVODOPA [Suspect]
     Active Substance: CARBIDOPA\LEVODOPA
     Indication: Parkinson^s disease
     Dosage: MORNING DOSE (ML): 11.00 CONTINUOUS DOSE (ML): 4.00 EXTRA DOSE (ML): 2.00
     Route: 050
     Dates: start: 20220525, end: 20240310
  2. CARBIDOPA\LEVODOPA [Suspect]
     Active Substance: CARBIDOPA\LEVODOPA
  3. BENSERAZIDE HYDROCHLORIDE\LEVODOPA [Concomitant]
     Active Substance: BENSERAZIDE HYDROCHLORIDE\LEVODOPA
     Indication: Parkinson^s disease
     Dosage: FORM STRENGTH: 125 MG
     Route: 048
     Dates: start: 2022
  4. GABASET [Concomitant]
     Indication: Epilepsy
     Dosage: FORM STRENGTH: 600 MG
     Route: 048
     Dates: start: 20220525
  5. KEPPRA [Concomitant]
     Active Substance: LEVETIRACETAM
     Indication: Epilepsy
     Dosage: 750 MILLIGRAM?FORM STRENGTH: 250 MG?FREQUENCY TEXT: 2X1.5
     Route: 048
     Dates: start: 2007

REACTIONS (8)
  - Cardiac arrest [Fatal]
  - Inguinal hernia [Not Recovered/Not Resolved]
  - Ileus [Not Recovered/Not Resolved]
  - Respiratory arrest [Recovered/Resolved]
  - Acute kidney injury [Not Recovered/Not Resolved]
  - Cardiac arrest [Recovered/Resolved]
  - Respiratory arrest [Fatal]
  - Device dislocation [Recovered/Resolved]

NARRATIVE: CASE EVENT DATE: 20240306
